FAERS Safety Report 9836604 (Version 1)
Quarter: 2013Q4

REPORT INFORMATION
  Report Type: Spontaneous
  Country: US (occurrence: None)
  Receive Date: 20131121
  Receipt Date: 20131121
  Transmission Date: 20140711
  Serious: Yes (Other)
  Sender: FDA-Public Use
  Company Number: 1000047382

PATIENT
  Age: 94 Year
  Sex: Male

DRUGS (8)
  1. TUDORZA PRESSAIR [Suspect]
     Indication: BRONCHITIS
     Route: 055
     Dates: start: 201304, end: 201305
  2. TUDORZA PRESSAIR [Suspect]
     Indication: CHRONIC OBSTRUCTIVE PULMONARY DISEASE
     Route: 055
     Dates: start: 201304, end: 201305
  3. PROCRIT (EPOETEIN ALFA) [Concomitant]
  4. FOLIC ACID (FOLIC ACID) (FOLIC ACID) [Concomitant]
  5. PLAVIX (GLOPIDGREL BISULPHATE) (GLOPIDGREL BISULPHATE)) [Concomitant]
  6. ALLOPURINOL) (100 MILLIGRAM) (ALLOPURINOL) [Concomitant]
  7. METOPROLOL (METOPROLOL) (METOPROLOL) [Concomitant]
  8. FUROSEMIDE (FUROSEMIDE) (FUROSEMIDE) [Concomitant]

REACTIONS (1)
  - Pruritus generalised [None]
